APPROVED DRUG PRODUCT: BENZONATATE
Active Ingredient: BENZONATATE
Strength: 150MG
Dosage Form/Route: CAPSULE;ORAL
Application: A040627 | Product #003
Applicant: THEPHARMANETWORK LLC
Approved: Sep 24, 2014 | RLD: No | RS: Yes | Type: RX